FAERS Safety Report 4595460-X (Version None)
Quarter: 2005Q1

REPORT INFORMATION
  Report Type: 
  Country: None (occurrence: None)
  Receive Date: 20050224
  Receipt Date: 20050208
  Transmission Date: 20050727
  Serious: Yes (Other)
  Sender: FDA-Public Use
  Company Number: USA050189354

PATIENT
  Age: 43 Year
  Sex: Male
  Weight: 84 kg

DRUGS (1)
  1. STRATTERA [Suspect]
     Indication: ATTENTION DEFICIT/HYPERACTIVITY DISORDER
     Dosage: 60 MG/1 DAY
     Dates: start: 20040501

REACTIONS (4)
  - BLOOD PRESSURE DIASTOLIC INCREASED [None]
  - CARDIAC VENTRICULAR DISORDER [None]
  - CARDIOMEGALY [None]
  - HYPERTENSION [None]
